FAERS Safety Report 4381815-5 (Version None)
Quarter: 2004Q2

REPORT INFORMATION
  Report Type: 
  Country: None (occurrence: None)
  Receive Date: 20040615
  Receipt Date: 20040603
  Transmission Date: 20050107
  Serious: No
  Sender: FDA-Public Use
  Company Number: 2004PK00991

PATIENT
  Age: 50 Year
  Sex: Male

DRUGS (10)
  1. IRESSA [Suspect]
     Indication: NON-SMALL CELL LUNG CANCER
     Dosage: 250 MG DAILY PO
     Route: 048
     Dates: start: 20040108
  2. BRONCHORETARD [Concomitant]
  3. GLUCOBAY [Concomitant]
  4. GLYBURIDE [Concomitant]
  5. MAGNESIUM [Concomitant]
  6. SOTALOL HCL [Concomitant]
  7. ATROVENT [Concomitant]
  8. OXIS [Concomitant]
  9. MARCUMAR [Concomitant]
  10. FRAXIPARIN [Concomitant]

REACTIONS (4)
  - ASTIGMATISM [None]
  - CATARACT [None]
  - HYPERMETROPIA [None]
  - PRESBYOPIA [None]
